FAERS Safety Report 21314425 (Version 1)
Quarter: 2022Q3

REPORT INFORMATION
  Report Type: Report from Study
  Country: US (occurrence: US)
  Receive Date: 20220909
  Receipt Date: 20220909
  Transmission Date: 20221026
  Serious: Yes (Other)
  Sender: FDA-Public Use
  Company Number: US-TAKEDA-US202014698

PATIENT
  Sex: Female

DRUGS (1)
  1. HUMAN IMMUNOGLOBULIN G [Suspect]
     Active Substance: HUMAN IMMUNOGLOBULIN G
     Indication: Immunodeficiency common variable
     Dosage: 20 GRAM, Q2WEEKS
     Route: 065

REACTIONS (6)
  - Pelvic fracture [Unknown]
  - Sinusitis [Unknown]
  - Viral infection [Unknown]
  - Fall [Unknown]
  - Device breakage [Unknown]
  - Inappropriate schedule of product administration [Unknown]
